FAERS Safety Report 23047494 (Version 2)
Quarter: 2023Q4

REPORT INFORMATION
  Report Type: Spontaneous
  Country: US (occurrence: US)
  Receive Date: 20231010
  Receipt Date: 20231021
  Transmission Date: 20240110
  Serious: Yes (Hospitalization, Other)
  Sender: FDA-Public Use
  Company Number: US-PROCTER_AND_GAMBLE-PH23008978

PATIENT
  Age: 61 Year
  Sex: Female

DRUGS (5)
  1. DIPHENHYDRAMINE HYDROCHLORIDE [Suspect]
     Active Substance: DIPHENHYDRAMINE HYDROCHLORIDE
     Dosage: MULTIPLE EMPTY MEDICATION BOTTLES
  2. DICYCLOMINE [Suspect]
     Active Substance: DICYCLOMINE HYDROCHLORIDE
     Dosage: MULTIPLE EMPTY MEDICATION BOTTLES
  3. ONDANSETRON [Suspect]
     Active Substance: ONDANSETRON
     Dosage: MULTIPLE EMPTY MEDICATION BOTTLES
  4. NAPROXEN [Suspect]
     Active Substance: NAPROXEN
  5. METFORMIN [Suspect]
     Active Substance: METFORMIN HYDROCHLORIDE
     Dosage: PARTIALLY EMPTY BOTTLE

REACTIONS (12)
  - Anticholinergic syndrome [Recovered/Resolved]
  - Depressed level of consciousness [Recovered/Resolved]
  - Mental status changes [Recovered/Resolved]
  - Coma scale abnormal [Recovered/Resolved]
  - Delirium [Recovered/Resolved]
  - Mydriasis [Recovered/Resolved]
  - Skin warm [Recovered/Resolved]
  - Flushing [Recovered/Resolved]
  - Loss of consciousness [Recovered/Resolved]
  - Urinary incontinence [Recovered/Resolved]
  - Urinary retention [Recovered/Resolved]
  - Mucosal dryness [Recovered/Resolved]
